FAERS Safety Report 13741517 (Version 2)
Quarter: 2017Q3

REPORT INFORMATION
  Report Type: Report from Study
  Country: None (occurrence: HU)
  Receive Date: 20170711
  Receipt Date: 20170720
  Transmission Date: 20171127
  Serious: Yes (Hospitalization)
  Sender: FDA-Public Use
  Company Number: HU-ABBVIE-17P-076-2031715-00

PATIENT
  Age: 63 Year
  Sex: Male
  Weight: 60.5 kg

DRUGS (15)
  1. IRABEL [Concomitant]
     Active Substance: IRBESARTAN
     Indication: PRODUCT USED FOR UNKNOWN INDICATION
  2. POTASSIUM [Concomitant]
     Active Substance: POTASSIUM
     Indication: PRODUCT USED FOR UNKNOWN INDICATION
  3. FUROSEMIDE. [Concomitant]
     Active Substance: FUROSEMIDE
     Indication: PRODUCT USED FOR UNKNOWN INDICATION
  4. MODERIBA [Concomitant]
     Active Substance: RIBAVIRIN
     Indication: HEPATITIS C
     Route: 048
     Dates: start: 20170606, end: 20170710
  5. URSOFALK [Concomitant]
     Active Substance: URSODIOL
     Indication: PRODUCT USED FOR UNKNOWN INDICATION
  6. BETALOC [Concomitant]
     Active Substance: METOPROLOL TARTRATE
     Indication: PRODUCT USED FOR UNKNOWN INDICATION
  7. TENOX [Concomitant]
     Indication: PRODUCT USED FOR UNKNOWN INDICATION
  8. EXVIERA [Interacting]
     Active Substance: DASABUVIR
     Indication: CHRONIC HEPATITIS C
     Route: 048
     Dates: start: 20170606, end: 20170710
  9. NORIFAZ TRIO [Concomitant]
     Indication: PRODUCT USED FOR UNKNOWN INDICATION
  10. CONTROLOC [Concomitant]
     Active Substance: PANTOPRAZOLE SODIUM
     Indication: PRODUCT USED FOR UNKNOWN INDICATION
  11. SIROLIMUS. [Interacting]
     Active Substance: SIROLIMUS
     Indication: IMMUNOSUPPRESSION
     Route: 048
     Dates: end: 20170627
  12. MEDROL [Concomitant]
     Active Substance: METHYLPREDNISOLONE
     Indication: PRODUCT USED FOR UNKNOWN INDICATION
  13. VIEKIRAX [Suspect]
     Active Substance: OMBITASVIR\PARITAPREVIR\RITONAVIR
     Indication: CHRONIC HEPATITIS C
     Dosage: 12.5/75/50 MG; 2 TABLETS AT A TIME
     Route: 048
     Dates: start: 20170606, end: 20170710
  14. CARVOL [Concomitant]
     Indication: PRODUCT USED FOR UNKNOWN INDICATION
  15. SIROLIMUS. [Interacting]
     Active Substance: SIROLIMUS
     Route: 048
     Dates: start: 20170628

REACTIONS (11)
  - Jaundice [Unknown]
  - Hyperbilirubinaemia [Unknown]
  - Drug hypersensitivity [Not Recovered/Not Resolved]
  - Toxicity to various agents [Unknown]
  - Nasal injury [Not Recovered/Not Resolved]
  - Lip injury [Not Recovered/Not Resolved]
  - Asthenia [Unknown]
  - Pneumonia [Unknown]
  - Immunosuppression [Not Recovered/Not Resolved]
  - Drug interaction [Unknown]
  - Peripheral swelling [Unknown]

NARRATIVE: CASE EVENT DATE: 20170628
